FAERS Safety Report 7196143-2 (Version None)
Quarter: 2010Q4

REPORT INFORMATION
  Report Type: 
  Country: None (occurrence: None)
  Receive Date: 20101223
  Receipt Date: 20101018
  Transmission Date: 20110411
  Serious: No
  Sender: FDA-Public Use
  Company Number: US-AMGEN-USASP2010001261

PATIENT
  Sex: Female

DRUGS (2)
  1. ENBREL [Suspect]
     Indication: RHEUMATOID ARTHRITIS
     Dates: start: 20100601, end: 20101013
  2. TREXALL [Concomitant]
     Dates: start: 20050101

REACTIONS (1)
  - WHITE BLOOD CELL COUNT DECREASED [None]
